FAERS Safety Report 6004430-6 (Version None)
Quarter: 2008Q4

REPORT INFORMATION
  Report Type: 
  Country: None (occurrence: None)
  Receive Date: 20081216
  Receipt Date: 20081208
  Transmission Date: 20090506
  Serious: Yes (Other)
  Sender: FDA-Public Use
  Company Number: JP-MERCK-0812USA02650

PATIENT
  Age: 63 Year
  Sex: Female

DRUGS (2)
  1. FOSAMAX [Suspect]
     Indication: OSTEOPOROSIS
     Route: 048
     Dates: start: 20020108, end: 20081104
  2. FOSAMAX [Suspect]
     Route: 048
     Dates: start: 20081105, end: 20081126

REACTIONS (1)
  - PERIODONTITIS [None]
